FAERS Safety Report 6852025-4 (Version None)
Quarter: 2010Q3

REPORT INFORMATION
  Report Type: 
  Country: None (occurrence: None)
  Receive Date: 20100717
  Receipt Date: 20071102
  Transmission Date: 20110219
  Serious: No
  Sender: FDA-Public Use
  Company Number: US-PFIZER INC-2007094168

PATIENT
  Age: 50 Year
  Sex: Female
  Weight: 59 kg

DRUGS (3)
  1. CHANTIX [Suspect]
     Indication: SMOKING CESSATION THERAPY
     Route: 048
     Dates: start: 20071102, end: 20071102
  2. ANTIDEPRESSANTS [Concomitant]
     Indication: DEPRESSION
  3. ALL OTHER THERAPEUTIC PRODUCTS [Concomitant]
     Indication: ANXIETY

REACTIONS (1)
  - THERAPEUTIC RESPONSE UNEXPECTED [None]
